FAERS Safety Report 4937401-9 (Version None)
Quarter: 2006Q1

REPORT INFORMATION
  Report Type: 
  Country: None (occurrence: None)
  Receive Date: 20060302
  Receipt Date: 20060221
  Transmission Date: 20060701
  Serious: Yes (Death, Other)
  Sender: FDA-Public Use
  Company Number: HK200602003169

PATIENT
  Age: 65 Year
  Sex: Male
  Weight: 62 kg

DRUGS (2)
  1. GEMCITABINE HYDROCHLORIDE (GEMCITABINE [Suspect]
     Indication: NON-SMALL CELL LUNG CANCER
     Dosage: 1250 MG/M2,
     Dates: start: 20051111, end: 20060119
  2. CARBOPLATIN [Concomitant]

REACTIONS (6)
  - ALANINE AMINOTRANSFERASE INCREASED [None]
  - ASPARTATE AMINOTRANSFERASE INCREASED [None]
  - BLOOD ALKALINE PHOSPHATASE INCREASED [None]
  - GAMMA-GLUTAMYLTRANSFERASE INCREASED [None]
  - HEPATOMEGALY [None]
  - METASTASES TO LIVER [None]
